FAERS Safety Report 25960870 (Version 1)
Quarter: 2025Q4

REPORT INFORMATION
  Report Type: Spontaneous
  Country: CA (occurrence: CA)
  Receive Date: 20251027
  Receipt Date: 20251027
  Transmission Date: 20260117
  Serious: Yes (Other)
  Sender: GLAXOSMITHKLINE
  Company Number: CA-GSK-CA2025AMR136450

PATIENT
  Age: 74 Year
  Sex: Female

DRUGS (2)
  1. ARNUITY ELLIPTA [Suspect]
     Active Substance: FLUTICASONE FUROATE
     Indication: Asthma
     Dosage: 100 UG, QD
  2. ALBUTEROL [Concomitant]
     Active Substance: ALBUTEROL
     Indication: Product used for unknown indication
     Dosage: UNK, LIQUID INTRAVENOUS

REACTIONS (5)
  - Erythema [Recovering/Resolving]
  - Oral discomfort [Recovering/Resolving]
  - Paraesthesia oral [Recovering/Resolving]
  - Pruritus [Recovering/Resolving]
  - Secretion discharge [Recovering/Resolving]
